FAERS Safety Report 19361341 (Version 9)
Quarter: 2021Q3

REPORT INFORMATION
  Report Type: Report from Study
  Country: None (occurrence: BE)
  Receive Date: 20210603
  Receipt Date: 20210810
  Transmission Date: 20211014
  Serious: Yes (Hospitalization, Other)
  Sender: FDA-Public Use
  Company Number: BE-ABBVIE-21K-013-3926721-00

PATIENT
  Sex: Male
  Weight: 74 kg

DRUGS (7)
  1. REMERGON [Concomitant]
     Active Substance: MIRTAZAPINE
     Indication: ANTIDEPRESSANT THERAPY
     Route: 048
  2. PROLOPA [Concomitant]
     Active Substance: BENSERAZIDE\LEVODOPA
     Indication: PARKINSON^S DISEASE
     Route: 048
  3. SIMVASTATINE [Concomitant]
     Active Substance: SIMVASTATIN
     Indication: BLOOD CHOLESTEROL
     Route: 048
  4. FLUDROCORTISON [Concomitant]
     Active Substance: FLUDROCORTISONE
     Indication: HYPOTENSION
     Dosage: FLUDROCORT.
     Route: 048
  5. PROLOPA [Concomitant]
     Active Substance: BENSERAZIDE\LEVODOPA
     Indication: PARKINSON^S DISEASE
     Dosage: ONCE DAILY AT 7.00
  6. DUODOPA [Suspect]
     Active Substance: CARBIDOPA\LEVODOPA
     Indication: PARKINSON^S DISEASE
     Route: 050
     Dates: start: 20201130, end: 20201204
  7. DUODOPA [Suspect]
     Active Substance: CARBIDOPA\LEVODOPA
     Dosage: MD 9.5 ML; CD 3.8 ML/HR DURING 16 HOURS; ED 1.5 ML
     Route: 050
     Dates: start: 20201204

REACTIONS (11)
  - Cholangitis [Unknown]
  - Asthenia [Recovering/Resolving]
  - Inappropriate schedule of product administration [Recovered/Resolved]
  - Mobility decreased [Unknown]
  - Cholangiocarcinoma [Unknown]
  - Bradycardia [Not Recovered/Not Resolved]
  - On and off phenomenon [Unknown]
  - Hospitalisation [Unknown]
  - Speech disorder [Unknown]
  - Device dislocation [Unknown]
  - Biliary neoplasm [Unknown]

NARRATIVE: CASE EVENT DATE: 2021
